FAERS Safety Report 20088209 (Version 2)
Quarter: 2022Q1

REPORT INFORMATION
  Report Type: Report from Study
  Country: BE (occurrence: BE)
  Receive Date: 20211118
  Receipt Date: 20220222
  Transmission Date: 20220423
  Serious: Yes (Hospitalization)
  Sender: FDA-Public Use
  Company Number: BE-CELLTRION INC.-2021BE015499

PATIENT

DRUGS (17)
  1. RITUXIMAB [Suspect]
     Active Substance: RITUXIMAB
     Indication: Diffuse large B-cell lymphoma
     Dosage: 375 MG/M2, EVERY 3 WEEKS (DATE OF LAST DOSE PRIOR TO EVENT: 21/SEP/2021)
     Route: 041
     Dates: start: 20210607, end: 20210810
  2. METHYLPREDNISOLONE [Suspect]
     Active Substance: METHYLPREDNISOLONE
     Indication: Diffuse large B-cell lymphoma
     Dosage: 80 MG, PER 1 DAY
     Route: 048
     Dates: start: 20210608, end: 20210612
  3. METHYLPREDNISOLONE [Suspect]
     Active Substance: METHYLPREDNISOLONE
     Dosage: 80 MG, PER 1 DAY
     Route: 048
     Dates: start: 20210703, end: 20210724
  4. METHYLPREDNISOLONE [Suspect]
     Active Substance: METHYLPREDNISOLONE
     Dosage: 80 MG, PER 1 DAY
     Route: 048
     Dates: start: 20210629, end: 20210703
  5. CYCLOPHOSPHAMIDE [Suspect]
     Active Substance: CYCLOPHOSPHAMIDE
     Indication: Diffuse large B-cell lymphoma
     Dosage: 750 MG/M2, EVERY 3 WEEKS
     Route: 042
     Dates: start: 20210608, end: 20210810
  6. EPCORITAMAB [Suspect]
     Active Substance: EPCORITAMAB
     Indication: Diffuse large B-cell lymphoma
     Dosage: 48 MG, EVERY 1 WEEK (FULL DOSE: 48 MILLIGRAM); PHARMACEUTICAL DOSE FORM: CONCENTRATE FOR SOLUTION FO
     Route: 058
     Dates: start: 20210622, end: 20210720
  7. EPCORITAMAB [Suspect]
     Active Substance: EPCORITAMAB
     Dosage: 48 MG, EVERY 1 WEEK (FULL DOSE: 48 MILLIGRAM); PHARMACEUTICAL DOSE FORM: CONCENTRATE FOR SOLUTION FO
     Route: 058
     Dates: start: 20210803, end: 20210824
  8. EPCORITAMAB [Suspect]
     Active Substance: EPCORITAMAB
     Dosage: 0.16 MG (PRIMING DOSE 0.16 MG); PHARMACEUTICAL DOSE FORM: CONCENTRATE FOR SOLUTION FOR INJECTION; RE
     Route: 058
     Dates: start: 20210608, end: 20210608
  9. EPCORITAMAB [Suspect]
     Active Substance: EPCORITAMAB
     Dosage: 0.8 MG (INTERMEDIATE DOSE: 0.8 MG); PHARMACEUTICAL DOSE FORM: CONCENTRATE FOR SOLUTION FOR INJECTION
     Route: 058
     Dates: start: 20210615, end: 20210615
  10. DOXORUBICIN [Suspect]
     Active Substance: DOXORUBICIN
     Indication: Diffuse large B-cell lymphoma
     Dosage: 502 MG/M2, EVERY 3 WEEKS
     Route: 042
     Dates: start: 20210608, end: 20210810
  11. VINCRISTINE [Suspect]
     Active Substance: VINCRISTINE
     Indication: Diffuse large B-cell lymphoma
     Dosage: 1.4 MG/M2, EVERY 3 WEEKS
     Route: 042
     Dates: start: 20210608, end: 20210810
  12. CARVEDILOL [Concomitant]
     Active Substance: CARVEDILOL
     Dosage: UNK
     Route: 065
     Dates: start: 20150710
  13. CETIRIZINE HYDROCHLORIDE [Concomitant]
     Active Substance: CETIRIZINE HYDROCHLORIDE
     Dosage: UNK
     Route: 065
     Dates: start: 20211012, end: 20211012
  14. ACETAMINOPHEN [Concomitant]
     Active Substance: ACETAMINOPHEN
     Dosage: UNK
     Route: 065
     Dates: start: 20210921, end: 20211012
  15. PHENERGAN [Concomitant]
     Active Substance: PROMETHAZINE HYDROCHLORIDE
     Dosage: UNK
     Route: 042
     Dates: start: 20210921, end: 20210921
  16. SOLU-MEDROL [Concomitant]
     Active Substance: METHYLPREDNISOLONE SODIUM SUCCINATE
     Dosage: 80 MG
     Dates: start: 20211012, end: 20211012
  17. ASPIRIN [Concomitant]
     Active Substance: ASPIRIN
     Dosage: UNK
     Route: 065
     Dates: start: 20210812, end: 20210921

REACTIONS (1)
  - Neutrophil count decreased [Not Recovered/Not Resolved]

NARRATIVE: CASE EVENT DATE: 20210926
